FAERS Safety Report 8433491-X (Version None)
Quarter: 2012Q2

REPORT INFORMATION
  Report Type: 
  Country: None (occurrence: None)
  Receive Date: 20120613
  Receipt Date: 20120530
  Transmission Date: 20120825
  Serious: Yes (Life-Threatening)
  Sender: FDA-Public Use
  Company Number: NL-TEVA-341629ISR

PATIENT
  Sex: Male

DRUGS (7)
  1. ACETAMINOPHEN [Concomitant]
     Dates: start: 20120101
  2. METFORMIN HCL [Suspect]
     Indication: DIABETES MELLITUS
     Dosage: 2000 MILLIGRAM;
     Route: 048
     Dates: start: 20111001, end: 20120329
  3. SIMVASTATIN [Suspect]
     Indication: HYPERCHOLESTEROLAEMIA
     Dosage: 40 MILLIGRAM;
     Dates: start: 20111001, end: 20120301
  4. INSULATARD PENFILL INJ 100IE/ML PATR 3ML [Concomitant]
     Dosage: 16 IU (INTERNATIONAL UNIT);
     Dates: start: 20111001
  5. PERSANTINE RETARD CAPSULE MGA 200MG [Concomitant]
     Dates: start: 20111001
  6. PERINDOPRIL TERT BUTYLAMINE A TABLET 2MG [Concomitant]
     Dosage: 2 MILLIGRAM;
     Dates: start: 20111001
  7. ACETYLSALICYLZUUR CARDIO A DISP TABLET 80MG [Concomitant]
     Dosage: 80 MILLIGRAM;
     Dates: start: 20111001

REACTIONS (2)
  - NAUSEA [None]
  - JAUNDICE [None]
